FAERS Safety Report 11153561 (Version 1)
Quarter: 2015Q2

REPORT INFORMATION
  Report Type: Spontaneous
  Country: US (occurrence: US)
  Receive Date: 20150602
  Receipt Date: 20150602
  Transmission Date: 20150821
  Serious: No
  Sender: FDA-Public Use
  Company Number: US-NOVEN PHARMACEUTICALS, INC.-14US009455

PATIENT
  Age: 13 Year
  Sex: Male
  Weight: 77.1 kg

DRUGS (5)
  1. DAYTRANA [Suspect]
     Active Substance: METHYLPHENIDATE
     Indication: ATTENTION DEFICIT/HYPERACTIVITY DISORDER
     Dosage: 2 X 30MG, UNK
     Route: 062
     Dates: start: 2009
  2. STRATTERA [Concomitant]
     Active Substance: ATOMOXETINE HYDROCHLORIDE
     Indication: ATTENTION DEFICIT/HYPERACTIVITY DISORDER
     Route: 048
  3. DAYTRANA [Suspect]
     Active Substance: METHYLPHENIDATE
     Indication: PSYCHOMOTOR HYPERACTIVITY
  4. CONCERTA [Concomitant]
     Active Substance: METHYLPHENIDATE HYDROCHLORIDE
     Indication: ATTENTION DEFICIT/HYPERACTIVITY DISORDER
     Route: 048
  5. DAYTRANA [Suspect]
     Active Substance: METHYLPHENIDATE
     Indication: IMPULSIVE BEHAVIOUR

REACTIONS (5)
  - Disturbance in attention [Unknown]
  - Wrong technique in drug usage process [Not Recovered/Not Resolved]
  - Disturbance in social behaviour [Unknown]
  - Drug prescribing error [Not Recovered/Not Resolved]
  - Psychomotor hyperactivity [Unknown]

NARRATIVE: CASE EVENT DATE: 201404
